FAERS Safety Report 24020700 (Version 2)
Quarter: 2024Q3

REPORT INFORMATION
  Report Type: Spontaneous
  Country: US (occurrence: US)
  Receive Date: 20240627
  Receipt Date: 20240710
  Transmission Date: 20241016
  Serious: No
  Sender: PFIZER
  Company Number: US-PFIZER INC-202400201191

PATIENT
  Age: 71 Year
  Sex: Female
  Weight: 68.027 kg

DRUGS (2)
  1. IBRANCE [Suspect]
     Active Substance: PALBOCICLIB
     Dosage: 125 MG
     Dates: start: 2022, end: 2022
  2. IBRANCE [Suspect]
     Active Substance: PALBOCICLIB
     Dosage: ONCE A DAY, 3 WEEKS ON AND 1 WEEK OFF
     Dates: start: 2022

REACTIONS (6)
  - Product storage error [Unknown]
  - Product colour issue [Unknown]
  - Poor quality product administered [Unknown]
  - Neoplasm progression [Unknown]
  - Flatulence [Unknown]
  - Pain [Recovering/Resolving]
